FAERS Safety Report 12074126 (Version 1)
Quarter: 2016Q1

REPORT INFORMATION
  Report Type: Spontaneous
  Country: FR (occurrence: FR)
  Receive Date: 20160212
  Receipt Date: 20160212
  Transmission Date: 20160526
  Serious: Yes (Hospitalization)
  Sender: FDA-Public Use
  Company Number: FR-AMGEN-FRASP2016017212

PATIENT
  Age: 22 Year
  Sex: Female

DRUGS (5)
  1. LAROXYL [Concomitant]
     Active Substance: AMITRIPTYLINE
     Dosage: UNK
  2. PROCORALAN [Suspect]
     Active Substance: IVABRADINE
     Indication: SINUS TACHYCARDIA
     Dosage: 7.5 MG, QD
     Route: 048
  3. PROCORALAN [Suspect]
     Active Substance: IVABRADINE
     Dosage: 150 MG, SINGLE
     Route: 048
     Dates: start: 20151217, end: 20151217
  4. PROCORALAN [Suspect]
     Active Substance: IVABRADINE
     Dosage: 165 MG, SINGLE
     Route: 048
     Dates: start: 20151222, end: 20151222
  5. CLOZAPINE. [Concomitant]
     Active Substance: CLOZAPINE
     Dosage: UNK

REACTIONS (5)
  - Suicide attempt [Recovered/Resolved]
  - Nausea [Unknown]
  - Intentional overdose [Recovered/Resolved]
  - Bradycardia [Recovered/Resolved]
  - Hypotension [Recovered/Resolved]

NARRATIVE: CASE EVENT DATE: 20131119
